FAERS Safety Report 7783269-5 (Version None)
Quarter: 2011Q3

REPORT INFORMATION
  Report Type: 
  Country: None (occurrence: None)
  Receive Date: 20110928
  Receipt Date: 20110921
  Transmission Date: 20111222
  Serious: Yes (Hospitalization)
  Sender: FDA-Public Use
  Company Number: GB-SANOFI-AVENTIS-2011SA062176

PATIENT
  Age: 71 Year
  Sex: Female

DRUGS (4)
  1. DOXYCYCLINE [Suspect]
     Route: 065
     Dates: start: 20090706, end: 20090712
  2. AMOXICILLIN [Suspect]
     Route: 048
     Dates: start: 20090704, end: 20090706
  3. OSELTAMIVIR PHOSPHATE [Suspect]
     Indication: ILL-DEFINED DISORDER
     Route: 048
     Dates: start: 20090704, end: 20090708
  4. FUROSEMIDE [Suspect]
     Route: 048
     Dates: start: 20090704

REACTIONS (1)
  - ATRIAL FIBRILLATION [None]
